FAERS Safety Report 8663175 (Version 2)
Quarter: 2013Q4

REPORT INFORMATION
  Report Type: Spontaneous
  Country: CH (occurrence: CH)
  Receive Date: 20120713
  Receipt Date: 20131101
  Transmission Date: 20140711
  Serious: Yes (Other)
  Sender: FDA-Public Use
  Company Number: CH-009507513-1207CHE001654

PATIENT
  Age: 34 Year
  Sex: Female

DRUGS (3)
  1. NUVARING [Suspect]
     Indication: CONTRACEPTION
     Dosage: UNK UNK, QM
     Dates: start: 20120206
  2. TOCTINO [Suspect]
     Indication: DERMATITIS CONTACT
     Dosage: 30 MG, QD
     Route: 048
     Dates: start: 20120305, end: 201204
  3. TOCTINO [Suspect]
     Dosage: UNK UNK, QW
     Dates: start: 201204, end: 201206

REACTIONS (2)
  - Weight increased [Not Recovered/Not Resolved]
  - Increased appetite [Recovering/Resolving]
